FAERS Safety Report 6658613-2 (Version None)
Quarter: 2010Q1

REPORT INFORMATION
  Report Type: 
  Country: None (occurrence: None)
  Receive Date: 20100330
  Receipt Date: 20100316
  Transmission Date: 20100710
  Serious: Yes (Disabling)
  Sender: FDA-Public Use
  Company Number: DE-GENENTECH-299744

PATIENT
  Sex: Male

DRUGS (8)
  1. RITUXIMAB [Suspect]
     Indication: MALIGNANT LYMPHOID NEOPLASM
     Dosage: 700 MG/M2, UNK
     Route: 065
     Dates: start: 20090923
  2. PREDNISONE [Suspect]
     Indication: MALIGNANT LYMPHOID NEOPLASM
     Dosage: 40 MG/M2, UNK
     Route: 065
     Dates: start: 20090923
  3. CYCLOPHOSPHAMIDE [Suspect]
     Indication: MALIGNANT LYMPHOID NEOPLASM
     Dosage: 1250 MG/M2, UNK
     Route: 065
     Dates: start: 20090923
  4. ETOPOSIDE [Suspect]
     Indication: MALIGNANT LYMPHOID NEOPLASM
     Dosage: 1200 MG/M2, UNK
     Route: 065
     Dates: start: 20090923
  5. VINCRISTINE [Suspect]
     Indication: MALIGNANT LYMPHOID NEOPLASM
     Dosage: 2 MG/M2, UNK
     Route: 065
     Dates: end: 20090702
  6. PROCARBAZIN [Suspect]
     Indication: MALIGNANT LYMPHOID NEOPLASM
     Dosage: 100 MG/M2, UNK
     Route: 065
     Dates: start: 20090923
  7. BLEOMYCIN [Suspect]
     Indication: MALIGNANT LYMPHOID NEOPLASM
     Dosage: 10 MG/M2, UNK
     Route: 065
     Dates: end: 20090706
  8. ADRIAMYCIN PFS [Suspect]
     Indication: MALIGNANT LYMPHOID NEOPLASM
     Dosage: 35 MG/M2, UNK
     Route: 065
     Dates: start: 20090923

REACTIONS (1)
  - DEAFNESS [None]
